FAERS Safety Report 8906887 (Version 2)
Quarter: 2014Q2

REPORT INFORMATION
  Report Type: Spontaneous
  Country: GB (occurrence: GB)
  Receive Date: 20121114
  Receipt Date: 20131018
  Transmission Date: 20141212
  Serious: Yes (Hospitalization)
  Sender: FDA-Public Use
  Company Number: GB-PFIZER INC-2012278504

PATIENT
  Age: 92 Year
  Sex: Female
  Weight: 41 kg

DRUGS (9)
  1. PHENYTOIN [Suspect]
     Indication: EPILEPSY
     Dosage: 300 MG,DAILY
     Route: 048
  2. ADCAL-D3 [Concomitant]
     Dosage: UNK
  3. ACETYLSALICYLIC ACID [Concomitant]
     Dosage: UNK
  4. ATENOLOL [Concomitant]
     Dosage: UNK
  5. PROCHLORPERAZINE [Concomitant]
     Dosage: UNK
  6. FUROSEMIDE [Concomitant]
     Dosage: UNK
  7. SENNA [Concomitant]
     Dosage: UNK
  8. LACTULOSE [Concomitant]
     Dosage: UNK
  9. CO-AMOXICLAV [Concomitant]
     Dosage: UNK

REACTIONS (3)
  - Drug ineffective [Recovered/Resolved]
  - Medication error [Unknown]
  - Anticonvulsant drug level below therapeutic [Unknown]
